FAERS Safety Report 8277869-6 (Version None)
Quarter: 2012Q2

REPORT INFORMATION
  Report Type: 
  Country: None (occurrence: None)
  Receive Date: 20120412
  Receipt Date: 20120410
  Transmission Date: 20120825
  Serious: No
  Sender: FDA-Public Use
  Company Number: US-PFIZER INC-2011293624

PATIENT
  Sex: Male
  Weight: 79.365 kg

DRUGS (9)
  1. ASPIRIN [Concomitant]
     Dosage: UNK
  2. PHENYTOIN [Concomitant]
     Indication: CONVULSION
     Dosage: UNK
  3. ATORVASTATIN CALCIUM [Suspect]
     Indication: BLOOD CHOLESTEROL INCREASED
     Dosage: UNK
  4. COMBIVENT [Concomitant]
     Indication: ASTHMA
     Dosage: UNK
  5. LIPITOR [Suspect]
     Indication: BLOOD CHOLESTEROL INCREASED
     Dosage: 10 MG, 1X/DAY
     Route: 048
     Dates: end: 20090101
  6. LIPITOR [Suspect]
     Dosage: UNK
     Dates: start: 20090101
  7. FISH OIL [Concomitant]
     Dosage: UNK
  8. SIMVASTATIN [Suspect]
     Indication: BLOOD CHOLESTEROL INCREASED
     Dosage: 30 MG, 1X/DAY
     Route: 048
     Dates: start: 20090101, end: 20090101
  9. SINGULAIR [Concomitant]
     Indication: ASTHMA
     Dosage: UNK

REACTIONS (1)
  - BLOOD CHOLESTEROL INCREASED [None]
